FAERS Safety Report 6728341-3 (Version None)
Quarter: 2010Q2

REPORT INFORMATION
  Report Type: 
  Country: None (occurrence: None)
  Receive Date: 20100517
  Receipt Date: 20100511
  Transmission Date: 20101027
  Serious: Yes (Hospitalization)
  Sender: FDA-Public Use
  Company Number: DE-SANOFI-AVENTIS-2010SA010893

PATIENT
  Age: 56 Year
  Sex: Male
  Weight: 119 kg

DRUGS (15)
  1. AFLIBERCEPT [Suspect]
     Route: 042
     Dates: start: 20100111, end: 20100111
  2. AFLIBERCEPT [Suspect]
     Route: 042
     Dates: start: 20100208, end: 20100208
  3. OXALIPLATIN [Suspect]
     Route: 042
     Dates: start: 20100111, end: 20100111
  4. OXALIPLATIN [Suspect]
     Route: 042
     Dates: start: 20100208, end: 20100208
  5. FLUOROURACIL [Suspect]
     Route: 042
     Dates: start: 20100208, end: 20100208
  6. LEUCOVORIN CALCIUM [Suspect]
     Route: 042
     Dates: start: 20100208, end: 20100208
  7. EBRANTIL [Concomitant]
     Dates: start: 20100125, end: 20100125
  8. NITROGLYCERIN [Concomitant]
     Dates: start: 20100125, end: 20100125
  9. CANDESARTAN CILEXETIL [Concomitant]
  10. DIPYRONE TAB [Concomitant]
     Dates: start: 20091230, end: 20100104
  11. ALL OTHER THERAPEUTIC PRODUCTS [Concomitant]
     Dates: start: 20091230
  12. KETOPROFEN [Concomitant]
  13. ANEMET [Concomitant]
     Dates: start: 20100111, end: 20100125
  14. DEXAMETHASONE [Concomitant]
     Dates: start: 20100111, end: 20100125
  15. IBUPROFEN [Concomitant]
     Dates: start: 20100125, end: 20100125

REACTIONS (1)
  - VENTRICULAR ARRHYTHMIA [None]
